FAERS Safety Report 9205704 (Version 2)
Quarter: 2013Q2

REPORT INFORMATION
  Report Type: Spontaneous
  Country: US (occurrence: US)
  Receive Date: 20130403
  Receipt Date: 20130417
  Transmission Date: 20140414
  Serious: Yes (Other)
  Sender: FDA-Public Use
  Company Number: US-PFIZER INC-2013101536

PATIENT
  Age: 68 Year
  Sex: Female
  Weight: 90.7 kg

DRUGS (2)
  1. ADVIL PM [Suspect]
     Indication: PAIN
     Dosage: UNK, 1X/DAY
     Route: 048
     Dates: end: 20130326
  2. OMEGA-3 [Concomitant]
     Dosage: UNK,1X/DAY
     Route: 048

REACTIONS (14)
  - Choking [Unknown]
  - Apparent death [Unknown]
  - General physical health deterioration [Unknown]
  - Diarrhoea [Unknown]
  - Faeces discoloured [Unknown]
  - Tongue discolouration [Unknown]
  - Drug intolerance [Unknown]
  - Abdominal discomfort [Unknown]
  - Decreased appetite [Unknown]
  - Malaise [Unknown]
  - Cough [Unknown]
  - Hypersensitivity [Unknown]
  - Rash [Unknown]
  - Pruritus [Unknown]
